FAERS Safety Report 18369464 (Version 3)
Quarter: 2020Q4

REPORT INFORMATION
  Report Type: Spontaneous
  Country: JP (occurrence: JP)
  Receive Date: 20201012
  Receipt Date: 20201230
  Transmission Date: 20210114
  Serious: Yes (Other)
  Sender: FDA-Public Use
  Company Number: JP-ROCHE-2691304

PATIENT
  Age: 70 Year
  Sex: Male

DRUGS (4)
  1. SINLESTAL [Concomitant]
     Indication: DYSLIPIDAEMIA
     Dosage: 250 MG, BID
     Route: 048
  2. BEOVU [Suspect]
     Active Substance: BROLUCIZUMAB-DBLL
     Indication: AGE-RELATED MACULAR DEGENERATION
     Dosage: 120 MG/ML
     Route: 031
     Dates: start: 20200527, end: 20200527
  3. LUCENTIS [Suspect]
     Active Substance: RANIBIZUMAB
     Indication: CHOROIDAL NEOVASCULARISATION
     Route: 065
     Dates: start: 20191112, end: 20191210
  4. NU-LOTAN [Concomitant]
     Active Substance: LOSARTAN POTASSIUM
     Indication: HYPERTENSION
     Dosage: 25 MG, QD
     Route: 048

REACTIONS (8)
  - Vitreal cells [Unknown]
  - Vitreous floaters [Recovered/Resolved]
  - Concomitant disease aggravated [Recovered/Resolved]
  - Visual acuity reduced transiently [Recovered/Resolved]
  - Eye inflammation [Recovered/Resolved]
  - Visual impairment [Unknown]
  - Vitreous opacities [Unknown]
  - Anterior chamber inflammation [Unknown]

NARRATIVE: CASE EVENT DATE: 20200610
